FAERS Safety Report 8160768-8 (Version None)
Quarter: 2012Q1

REPORT INFORMATION
  Report Type: 
  Country: None (occurrence: None)
  Receive Date: 20120223
  Receipt Date: 20120214
  Transmission Date: 20120608
  Serious: Yes (Other)
  Sender: FDA-Public Use
  Company Number: PHHY2012NZ013492

PATIENT
  Sex: Female

DRUGS (1)
  1. FAMVIR [Suspect]
     Indication: ORAL HERPES
     Dosage: 1500 MG, QD
     Route: 048
     Dates: start: 20120213

REACTIONS (2)
  - PALPITATIONS [None]
  - SINUS TACHYCARDIA [None]
